FAERS Safety Report 8133985 (Version 2)
Quarter: 2020Q3

REPORT INFORMATION
  Report Type: Spontaneous
  Country: DK (occurrence: None)
  Receive Date: 20110901
  Receipt Date: 20110916
  Transmission Date: 20201105
  Serious: Yes (Life-Threatening, Hospitalization)
  Sender: FDA-Public Use
  Company Number: 1000023159

PATIENT
  Age: 21 Year
  Sex: Female

DRUGS (6)
  1. XANAX [Suspect]
     Active Substance: ALPRAZOLAM
     Dosage: ORAL
     Route: 048
     Dates: start: 20110814
  2. DEPAKOTE [Suspect]
     Active Substance: DIVALPROEX SODIUM
     Dosage: (750 MG), ORAL
     Route: 048
     Dates: start: 20110810, end: 20110814
  3. FERROUS SULFATE. [Suspect]
     Active Substance: FERROUS SULFATE
     Dosage: ORAL
     Route: 048
     Dates: start: 20110814
  4. ZOLPIDEM TARTRATE. [Suspect]
     Active Substance: ZOLPIDEM TARTRATE
     Dosage: 10 MG (10 MG, 1 IN 1 D)
     Dates: start: 20110802, end: 20110814
  5. LEVONORGESTREL AND ETHINYL ESTRADIOL [Suspect]
     Active Substance: ETHINYL ESTRADIOL\LEVONORGESTREL
     Dosage: ORAL
     Route: 048
     Dates: start: 20110814
  6. ESCITALOPRAM OXALATE. [Suspect]
     Active Substance: ESCITALOPRAM OXALATE
     Dosage: 20 MG (10 MG, 2 IN 1 D), ORAL
     Route: 048
     Dates: start: 20110728, end: 20110814

REACTIONS (3)
  - Severe acute respiratory syndrome [None]
  - Eosinophilic pneumonia [None]
  - Rhinitis [None]

NARRATIVE: CASE EVENT DATE: 20110812
